FAERS Safety Report 6165976-3 (Version None)
Quarter: 2009Q2

REPORT INFORMATION
  Report Type: 
  Country: None (occurrence: None)
  Receive Date: 20090422
  Receipt Date: 20090413
  Transmission Date: 20091009
  Serious: Yes (Life-Threatening, Hospitalization)
  Sender: FDA-Public Use
  Company Number: JHP200900115

PATIENT
  Age: 39 Year
  Sex: Male

DRUGS (5)
  1. EPINEPHRINE [Suspect]
     Indication: PRIAPISM
     Dosage: 1 ML OF EPI/LIDOCAINE SOLUTION 0.1 ML/0.1 MG OF EPI 1:1000 AND 0.9 ML/9 MG OF 1% LIDOCAINE X 3, INTR
     Route: 042
  2. LIDOCAINE [Concomitant]
  3. MORPHINE [Concomitant]
  4. LORAZEPAM [Concomitant]
  5. TERBUTALINE SULFATE [Concomitant]

REACTIONS (6)
  - ANXIETY [None]
  - BLOOD PRESSURE INCREASED [None]
  - CHEST PAIN [None]
  - HEADACHE [None]
  - SINUS TACHYCARDIA [None]
  - THERAPEUTIC AGENT TOXICITY [None]
